FAERS Safety Report 24379948 (Version 1)
Quarter: 2024Q3

REPORT INFORMATION
  Report Type: Spontaneous
  Country: US (occurrence: US)
  Receive Date: 20240930
  Receipt Date: 20240930
  Transmission Date: 20241016
  Serious: Yes (Other)
  Sender: ASCENT
  Company Number: US-ASCENT-2024ASLIT00039

PATIENT
  Age: 8 Year
  Sex: Male

DRUGS (2)
  1. METHYLPHENIDATE HYDROCHLORIDE [Suspect]
     Active Substance: METHYLPHENIDATE HYDROCHLORIDE
     Indication: Attention deficit hyperactivity disorder
     Dosage: AT 8 AM WITH BREAKFAST AND 4 HOURS AFTER THE FIRST DOSE
     Route: 048
  2. METHYLPHENIDATE HYDROCHLORIDE [Suspect]
     Active Substance: METHYLPHENIDATE HYDROCHLORIDE
     Dosage: 4 HOURS AFTER THE FIRST DOSE
     Route: 048

REACTIONS (1)
  - Pulmonary hypertension [Recovered/Resolved]
